FAERS Safety Report 7100016-0 (Version None)
Quarter: 2010Q4

REPORT INFORMATION
  Report Type: 
  Country: None (occurrence: None)
  Receive Date: 20101112
  Receipt Date: 20101102
  Transmission Date: 20110411
  Serious: Yes (Other)
  Sender: FDA-Public Use
  Company Number: PHEH2010US03584

PATIENT
  Sex: Female
  Weight: 77.098 kg

DRUGS (11)
  1. EXTAVIA [Suspect]
     Indication: MULTIPLE SCLEROSIS
     Dosage: 0.25 MG (0.50 ML), QOD
     Dates: start: 20100827
  2. EXTAVIA [Suspect]
     Dosage: 0.125 MG, QOD
     Route: 058
     Dates: start: 20100827
  3. EXTAVIA [Suspect]
     Dosage: 0.25 MG, QOD
     Dates: start: 20100828
  4. EXTAVIA [Suspect]
     Dosage: 0.625 MG, QOD
  5. ACETAMINOPHEN [Concomitant]
     Dosage: UNK
  6. IBUPROFEN [Concomitant]
     Dosage: 2-3 TIMES DAILY
  7. AMPYRA [Concomitant]
     Dosage: 10 MG, UNK
  8. ZOLOFT [Concomitant]
     Dosage: 25 MG, UNK
  9. MIRALAX [Concomitant]
     Dosage: UNK
  10. TYLENOL [Concomitant]
     Dosage: UNK
  11. ADVIL [Concomitant]
     Dosage: UNK

REACTIONS (21)
  - ARTHRALGIA [None]
  - ASTHENIA [None]
  - BACK PAIN [None]
  - DEPRESSION [None]
  - EYE DISCHARGE [None]
  - EYE INFECTION [None]
  - FATIGUE [None]
  - FEELING ABNORMAL [None]
  - FLUSHING [None]
  - HYPERHIDROSIS [None]
  - INFLUENZA LIKE ILLNESS [None]
  - INJECTION SITE ERYTHEMA [None]
  - INJECTION SITE HAEMATOMA [None]
  - MUSCULOSKELETAL PAIN [None]
  - NAUSEA [None]
  - NECK PAIN [None]
  - OCULAR HYPERAEMIA [None]
  - PAIN [None]
  - PAIN IN EXTREMITY [None]
  - PAIN IN JAW [None]
  - WEIGHT INCREASED [None]
